FAERS Safety Report 17629411 (Version 1)
Quarter: 2020Q2

REPORT INFORMATION
  Report Type: Spontaneous
  Country: US (occurrence: US)
  Receive Date: 20200406
  Receipt Date: 20200406
  Transmission Date: 20200713
  Serious: No
  Sender: FDA-Public Use
  Company Number: US-MYLANLABS-2020M1031392

PATIENT
  Sex: Male

DRUGS (1)
  1. RISPERIDONE TABLETS, USP [Suspect]
     Active Substance: RISPERIDONE
     Indication: PSYCHOTIC DISORDER
     Dosage: 3 MILLIGRAM, QD
     Route: 048
     Dates: start: 2014

REACTIONS (2)
  - Gynaecomastia [Not Recovered/Not Resolved]
  - Psychotic disorder [Not Recovered/Not Resolved]

NARRATIVE: CASE EVENT DATE: 2015
